FAERS Safety Report 14600951 (Version 1)
Quarter: 2018Q1

REPORT INFORMATION
  Report Type: Spontaneous
  Country: US (occurrence: US)
  Receive Date: 20180305
  Receipt Date: 20180305
  Transmission Date: 20180509
  Serious: Yes (Death)
  Sender: FDA-Public Use
  Company Number: US-CELGENEUS-USA-20180301173

PATIENT
  Age: 81 Year
  Sex: Female

DRUGS (6)
  1. THALOMID [Suspect]
     Active Substance: THALIDOMIDE
     Indication: CEREBRAL ARTERIOVENOUS MALFORMATION HAEMORRHAGIC
     Dosage: 100 MILLIGRAM
     Route: 048
     Dates: start: 201303
  2. THALOMID [Suspect]
     Active Substance: THALIDOMIDE
     Dosage: 100MG-50MG
     Route: 048
     Dates: start: 201305
  3. THALOMID [Suspect]
     Active Substance: THALIDOMIDE
     Dosage: 100 MILLIGRAM
     Route: 048
     Dates: start: 20160617
  4. THALOMID [Suspect]
     Active Substance: THALIDOMIDE
     Dosage: 100MG-50MG
     Route: 048
     Dates: start: 201612
  5. THALOMID [Suspect]
     Active Substance: THALIDOMIDE
     Dosage: 100 MILLIGRAM
     Route: 048
     Dates: start: 201709
  6. THALOMID [Suspect]
     Active Substance: THALIDOMIDE
     Dosage: 100 MILLIGRAM
     Route: 048
     Dates: start: 201801

REACTIONS (1)
  - Death [Fatal]

NARRATIVE: CASE EVENT DATE: 20180128
